FAERS Safety Report 19371324 (Version 1)
Quarter: 2021Q2

REPORT INFORMATION
  Report Type: Report from Study
  Country: ZA (occurrence: ZA)
  Receive Date: 20210604
  Receipt Date: 20210604
  Transmission Date: 20210717
  Serious: Yes (Hospitalization)
  Sender: FDA-Public Use
  Company Number: NVSC2021ZA115471

PATIENT
  Age: 35 Year
  Sex: Female

DRUGS (1)
  1. TUVIGIN [Suspect]
     Active Substance: FINGOLIMOD HYDROCHLORIDE
     Indication: MULTIPLE SCLEROSIS
     Dosage: 0.5 MG, QD
     Route: 048
     Dates: start: 20210505

REACTIONS (4)
  - Burns second degree [Unknown]
  - Erythema [Unknown]
  - Diarrhoea [Unknown]
  - Thermal burn [Unknown]

NARRATIVE: CASE EVENT DATE: 20210506
